FAERS Safety Report 10529822 (Version 2)
Quarter: 2015Q1

REPORT INFORMATION
  Report Type: Report from Study
  Country: US (occurrence: US)
  Receive Date: 20141021
  Receipt Date: 20150126
  Transmission Date: 20150720
  Serious: Yes (Hospitalization, Other)
  Sender: FDA-Public Use
  Company Number: US-AMGEN-USASL2014079679

PATIENT
  Age: 61 Year
  Sex: Female
  Weight: 43.6 kg

DRUGS (3)
  1. VITAMIN D                          /00107901/ [Concomitant]
     Active Substance: ERGOCALCIFEROL
     Dosage: UNK
  2. PROLIA [Suspect]
     Active Substance: DENOSUMAB
     Indication: OSTEOPOROSIS POSTMENOPAUSAL
     Dosage: 60 MG, Q6MO
     Route: 058
     Dates: start: 20131001, end: 20131001
  3. CALCIUM [Concomitant]
     Active Substance: CALCIUM
     Dosage: UNK

REACTIONS (16)
  - Feeling hot [Unknown]
  - Face injury [Unknown]
  - Loss of consciousness [Unknown]
  - Head injury [Unknown]
  - Hypertension [Recovered/Resolved]
  - Presyncope [Unknown]
  - Hyperhidrosis [Unknown]
  - Blood pressure decreased [Unknown]
  - Dehydration [Recovered/Resolved]
  - Nausea [Unknown]
  - Hot flush [Unknown]
  - Fall [Unknown]
  - Tooth fracture [Recovered/Resolved]
  - Tooth extraction [Unknown]
  - Atrial tachycardia [Unknown]
  - Orthostatic hypotension [Unknown]

NARRATIVE: CASE EVENT DATE: 20130319
